FAERS Safety Report 6291107-5 (Version None)
Quarter: 2009Q3

REPORT INFORMATION
  Report Type: 
  Country: None (occurrence: None)
  Receive Date: 20090730
  Receipt Date: 20090722
  Transmission Date: 20100115
  Serious: Yes (Hospitalization)
  Sender: FDA-Public Use
  Company Number: A0799170A

PATIENT
  Age: 55 Year
  Sex: Female

DRUGS (2)
  1. CEFTIN [Suspect]
     Indication: PNEUMONIA
  2. AVONEX [Suspect]
     Indication: DRUG USE FOR UNKNOWN INDICATION
     Dosage: 30MCG WEEKLY
     Route: 030
     Dates: start: 20030701

REACTIONS (3)
  - DEHYDRATION [None]
  - DIARRHOEA [None]
  - PSEUDOMEMBRANOUS COLITIS [None]
